FAERS Safety Report 7621156-3 (Version None)
Quarter: 2011Q3

REPORT INFORMATION
  Report Type: 
  Country: None (occurrence: None)
  Receive Date: 20110719
  Receipt Date: 20110706
  Transmission Date: 20111222
  Serious: Yes (Hospitalization, Other)
  Sender: FDA-Public Use
  Company Number: PHHY2011JP34941

PATIENT
  Sex: Male

DRUGS (6)
  1. MEDICON [Concomitant]
     Dosage: 45 MG, UNK
     Route: 048
     Dates: start: 20110407
  2. AFINITOR [Suspect]
     Dosage: 5 MG, DAILY
     Route: 048
     Dates: start: 20110307, end: 20110609
  3. ALLOPURINOL [Concomitant]
     Dosage: 100 MG, UNK
     Route: 048
     Dates: start: 20090122
  4. ALDACTONE [Concomitant]
     Dosage: 50 MG, UNK
     Route: 048
     Dates: start: 20100401
  5. AFINITOR [Suspect]
     Indication: METASTATIC RENAL CELL CARCINOMA
     Dosage: 10 MG, DAILY
     Route: 048
     Dates: start: 20110107, end: 20110217
  6. LASIX [Concomitant]
     Dosage: 40 MG, UNK
     Route: 048
     Dates: start: 20090302

REACTIONS (4)
  - HYPERGLYCAEMIA [None]
  - C-REACTIVE PROTEIN INCREASED [None]
  - NEOPLASM PROGRESSION [None]
  - NEOPLASM MALIGNANT [None]
